FAERS Safety Report 17396402 (Version 1)
Quarter: 2020Q1

REPORT INFORMATION
  Report Type: Spontaneous
  Country: US (occurrence: US)
  Receive Date: 20200207
  Receipt Date: 20200207
  Transmission Date: 20200409
  Serious: No
  Sender: FDA-Public Use
  Company Number: None

PATIENT
  Age: 40 Year
  Sex: Female

DRUGS (1)
  1. METHYLPHENIDATE ER [Suspect]
     Active Substance: METHYLPHENIDATE
     Indication: ATTENTION DEFICIT/HYPERACTIVITY DISORDER
     Route: 048
     Dates: start: 20180404

REACTIONS (4)
  - Headache [None]
  - Product substitution issue [None]
  - Affective disorder [None]
  - Apathy [None]

NARRATIVE: CASE EVENT DATE: 20200117
